FAERS Safety Report 8996980 (Version 2)
Quarter: 2013Q1

REPORT INFORMATION
  Report Type: Spontaneous
  Country: GB (occurrence: None)
  Receive Date: 20121220
  Receipt Date: 20130207
  Transmission Date: 20140127
  Serious: Yes (Hospitalization)
  Sender: FDA-Public Use
  Company Number: 2012AP004193

PATIENT
  Age: 59 Year
  Sex: Female

DRUGS (10)
  1. OMEPRAZOLE (OMEPRAZOLE) [Suspect]
     Indication: PROPHYLAXIS
     Route: 048
  2. TELFAST [Suspect]
     Indication: PROPHYLAXIS
     Route: 048
     Dates: start: 20121107
  3. ADCAL D3 (LEKOVIT CA) [Concomitant]
  4. CANDESARTAN CILEXETIL (CANDESARTAN CILEXETIL) [Concomitant]
  5. CROTAMITON (CROTAMITON) [Concomitant]
  6. DARBEPOETIN ALFA (DARBEPOETIN ALFA) [Concomitant]
  7. DIPROBASE ?/01132701/ (DIPROBASE) [Concomitant]
  8. DOXAZOSIN MESILATE (DOXAZOSIN MESILATE) [Concomitant]
  9. FOLIC ACID (FOLIC ACID) [Concomitant]
  10. PREDNISOLONE (PREDNISOLONE) [Concomitant]

REACTIONS (4)
  - Pain [None]
  - Paraesthesia [None]
  - Drug interaction [None]
  - Muscular weakness [None]
